FAERS Safety Report 14289484 (Version 1)
Quarter: 2017Q4

REPORT INFORMATION
  Report Type: Spontaneous
  Country: ID (occurrence: ID)
  Receive Date: 20171214
  Receipt Date: 20171214
  Transmission Date: 20180321
  Serious: Yes (Death)
  Sender: FDA-Public Use
  Company Number: ID-B.I. PHARMACEUTICALS,INC./RIDGEFIELD-2017-BI-066377

PATIENT
  Age: 59 Year
  Sex: Female

DRUGS (2)
  1. GILOTRIF [Suspect]
     Active Substance: AFATINIB
     Route: 065
  2. GILOTRIF [Suspect]
     Active Substance: AFATINIB
     Indication: NON-SMALL CELL LUNG CANCER STAGE IV
     Route: 065

REACTIONS (3)
  - Off label use [Unknown]
  - Diarrhoea [Recovered/Resolved]
  - Malignant neoplasm progression [Fatal]
